FAERS Safety Report 9857557 (Version 6)
Quarter: 2014Q2

REPORT INFORMATION
  Report Type: Report from Study
  Country: AU (occurrence: AU)
  Receive Date: 20140131
  Receipt Date: 20140507
  Transmission Date: 20141212
  Serious: Yes (Other)
  Sender: FDA-Public Use
  Company Number: PHHY2011AU77465

PATIENT
  Age: 35 Year
  Sex: Male
  Weight: 95 kg

DRUGS (18)
  1. CLOZARIL [Suspect]
     Indication: SCHIZOPHRENIA
     Dates: start: 200501, end: 201108
  2. CLOZARIL [Suspect]
     Dosage: 75 MG (25 MG MRG, 50 MG NIGHT)
     Dates: start: 20140222
  3. AMISULPRIDE [Concomitant]
     Indication: PSYCHOTIC DISORDER
     Dosage: 400 MG, BID
  4. ESCITALOPRAM [Concomitant]
     Dosage: 20 MG, DAILY
  5. CANDESARTAN [Concomitant]
     Dosage: 4 MG, QD
     Dates: start: 20110621
  6. BISOPROLOL [Concomitant]
     Dosage: 2.5 MG, QD
  7. ATENOLOL [Concomitant]
     Indication: PSYCHOTIC DISORDER
     Dosage: 25 MG, QD
     Dates: start: 20130212
  8. ATENOLOL [Concomitant]
     Dosage: 50 MG, MANE
  9. CITALOPRAM [Concomitant]
  10. ZUCLOPENTHIXOL [Concomitant]
     Indication: PSYCHOTIC DISORDER
     Dosage: 10 MG, BID
     Route: 048
  11. ZUCLOPENTHIXOL [Concomitant]
     Dosage: 400 MG, BIW
     Route: 030
  12. QUETIAPINE [Concomitant]
     Indication: PSYCHOTIC DISORDER
     Dosage: 600 MG, MANE
  13. OLANZAPINE [Concomitant]
     Indication: PSYCHOTIC DISORDER
     Dosage: 5 MG, UNK
  14. SERTRALINE [Concomitant]
     Indication: PSYCHOTIC DISORDER
     Dosage: 150 MG, MANE
     Route: 048
  15. SERTRALINE [Concomitant]
     Indication: SCHIZOPHRENIA
     Dosage: 200 MG, MANE
     Route: 048
  16. ARIPIPRAZOLE [Concomitant]
     Indication: SCHIZOPHRENIA
     Dosage: 30 MG, (MANE)
     Route: 048
  17. ZUCLOPENTHIXOL DECANOATE [Concomitant]
     Indication: PSYCHOTIC DISORDER
     Dosage: 250 MG, BIW
     Route: 030
  18. ZUCLOPENTHIXOL DECANOATE [Concomitant]
     Indication: SCHIZOPHRENIA
     Dosage: 400 MG, 2 WEEKLY
     Route: 030

REACTIONS (26)
  - Diastolic dysfunction [Unknown]
  - Left ventricular dysfunction [Recovered/Resolved]
  - Dyspnoea exertional [Unknown]
  - Ejection fraction decreased [Recovered/Resolved]
  - Mitral valve incompetence [Unknown]
  - Electrocardiogram PR prolongation [Unknown]
  - Atrioventricular block first degree [Unknown]
  - Schizophrenia [Unknown]
  - Psychotic disorder [Unknown]
  - Tachycardia [Unknown]
  - Electrocardiogram QT prolonged [Unknown]
  - Cardiomyopathy [Unknown]
  - Chest pain [Not Recovered/Not Resolved]
  - Lipids increased [Unknown]
  - C-reactive protein increased [Recovered/Resolved]
  - Anion gap increased [Recovered/Resolved]
  - Blood lactate dehydrogenase increased [Unknown]
  - Quality of life decreased [Unknown]
  - Malaise [Unknown]
  - Feeling abnormal [Unknown]
  - Heart rate increased [Recovered/Resolved]
  - Blood glucose increased [Unknown]
  - Lymphocyte count decreased [Unknown]
  - Aspartate aminotransferase increased [Recovered/Resolved]
  - Blood cholesterol increased [Unknown]
  - Conduction disorder [Unknown]
